FAERS Safety Report 4723579-9 (Version None)
Quarter: 2005Q3

REPORT INFORMATION
  Report Type: 
  Country: None (occurrence: None)
  Receive Date: 20050719
  Receipt Date: 20050707
  Transmission Date: 20060218
  Serious: Yes (Hospitalization)
  Sender: FDA-Public Use
  Company Number: OCTA-ALB25-01-S201-02

PATIENT
  Sex: Male
  Weight: 79 kg

DRUGS (8)
  1. ALBUMIN (HUMAN) [Suspect]
     Indication: BLOOD ALBUMIN DECREASED
     Dosage: 40 GM IV
     Route: 042
     Dates: start: 20050516
  2. ALBUMIN (HUMAN) [Suspect]
     Indication: BLOOD ALBUMIN DECREASED
     Dosage: 48 GM IV
     Route: 042
     Dates: start: 20050523
  3. FOLIC ACID [Concomitant]
  4. THIAMINE HCL [Concomitant]
  5. LANSOPRAZOLE [Concomitant]
  6. METHADONE [Concomitant]
  7. MULTI-VITAMINS [Concomitant]
  8. NYSTATIN [Concomitant]

REACTIONS (7)
  - ANAEMIA [None]
  - ASCITES [None]
  - ASTHENIA [None]
  - CANDIDIASIS [None]
  - COAGULOPATHY [None]
  - FATIGUE [None]
  - HYPONATRAEMIA [None]
